FAERS Safety Report 8312512-9 (Version None)
Quarter: 2012Q2

REPORT INFORMATION
  Report Type: 
  Country: None (occurrence: None)
  Receive Date: 20120425
  Receipt Date: 20120423
  Transmission Date: 20120825
  Serious: Yes (Hospitalization, Other)
  Sender: FDA-Public Use
  Company Number: US-MERCK-0706USA00844

PATIENT
  Age: 74 Year
  Sex: Female
  Weight: 66 kg

DRUGS (1)
  1. FOSAMAX [Suspect]
     Indication: OSTEOPOROSIS
     Route: 048
     Dates: end: 20050101

REACTIONS (57)
  - MYOCARDIAL INFARCTION [None]
  - ACTINIC KERATOSIS [None]
  - OSTEOARTHRITIS [None]
  - HEADACHE [None]
  - GASTROOESOPHAGEAL REFLUX DISEASE [None]
  - MALAISE [None]
  - BRONCHOSPASM [None]
  - ASTHMA [None]
  - OEDEMA PERIPHERAL [None]
  - RADICULITIS [None]
  - MUSCLE SPASMS [None]
  - MOUTH CYST [None]
  - LUMBAR RADICULOPATHY [None]
  - DYSPHONIA [None]
  - CONTUSION [None]
  - PARAESTHESIA [None]
  - PAIN IN EXTREMITY [None]
  - INGUINAL HERNIA [None]
  - HYPERCHOLESTEROLAEMIA [None]
  - CELLULITIS [None]
  - CHEST PAIN [None]
  - MUSCLE HAEMORRHAGE [None]
  - ARTHRALGIA [None]
  - GAIT DISTURBANCE [None]
  - DIARRHOEA [None]
  - SYNCOPE [None]
  - IMPAIRED HEALING [None]
  - CONJUNCTIVITIS [None]
  - ANAEMIA POSTOPERATIVE [None]
  - TYPE 2 DIABETES MELLITUS [None]
  - POSTOPERATIVE FEVER [None]
  - ARTHRITIS [None]
  - BONE LOSS [None]
  - HIATUS HERNIA [None]
  - PNEUMONIA [None]
  - PLEURITIC PAIN [None]
  - ASTHENIA [None]
  - NEURALGIA [None]
  - MUSCULOSKELETAL DISCOMFORT [None]
  - CATARACT [None]
  - ADVERSE DRUG REACTION [None]
  - HERPES ZOSTER [None]
  - INTERVERTEBRAL DISC PROTRUSION [None]
  - BRONCHITIS [None]
  - OSTEOMYELITIS [None]
  - FALL [None]
  - HIP FRACTURE [None]
  - URINARY TRACT INFECTION [None]
  - BUNDLE BRANCH BLOCK LEFT [None]
  - LOSS OF CONSCIOUSNESS [None]
  - NEURITIS [None]
  - LUNG NEOPLASM [None]
  - ARTHROPATHY [None]
  - PNEUMOCONIOSIS [None]
  - SINUS CONGESTION [None]
  - TENOSYNOVITIS [None]
  - ROAD TRAFFIC ACCIDENT [None]
